FAERS Safety Report 6357212-X (Version None)
Quarter: 2009Q3

REPORT INFORMATION
  Report Type: 
  Country: None (occurrence: None)
  Receive Date: 20090911
  Receipt Date: 20090902
  Transmission Date: 20100115
  Serious: No
  Sender: FDA-Public Use
  Company Number: TRP_06386_2009

PATIENT
  Sex: Male
  Weight: 83.9154 kg

DRUGS (5)
  1. INFERGEN [Suspect]
     Indication: HEPATITIS C
     Dosage: 15 ?G QD SUBCUTANEOUS
     Route: 058
     Dates: start: 20090710
  2. RIBAVIRIN [Suspect]
     Indication: HEPATITIS C
     Dosage: 600 MG BID ORAL
     Route: 048
     Dates: start: 20090710
  3. LOTREL [Concomitant]
  4. HYDROCHLOROTHIAZIDE [Concomitant]
  5. NEXIUM [Concomitant]

REACTIONS (3)
  - HEADACHE [None]
  - INJECTION SITE HAEMATOMA [None]
  - WEIGHT DECREASED [None]
